FAERS Safety Report 9391390 (Version 4)
Quarter: 2014Q1

REPORT INFORMATION
  Report Type: Not Available
  Country: IT (occurrence: IT)
  Receive Date: 20130709
  Receipt Date: 20140214
  Transmission Date: 20141002
  Serious: Yes (Other)
  Sender: FDA-Public Use
  Company Number: IT-ASTELLAS-2013US006984

PATIENT
  Age: 70 Year
  Sex: Male

DRUGS (4)
  1. TARCEVA [Suspect]
     Indication: LUNG NEOPLASM MALIGNANT
     Dosage: 150 MG, UID/QD
     Route: 048
     Dates: start: 20130405, end: 20130511
  2. GEMZAR [Concomitant]
     Indication: PRODUCT USED FOR UNKNOWN INDICATION
     Dosage: 1200 MG/M2, UNKNOWN/D
     Route: 065
  3. TIMOLOL [Concomitant]
     Indication: PRODUCT USED FOR UNKNOWN INDICATION
     Dosage: UNK
     Route: 065
  4. PANTORC [Concomitant]
     Indication: PRODUCT USED FOR UNKNOWN INDICATION
     Dosage: UNK
     Route: 065

REACTIONS (4)
  - Swelling face [Unknown]
  - Chloasma [Unknown]
  - Skin lesion [Unknown]
  - Pruritus [Unknown]
